FAERS Safety Report 6988781-4 (Version None)
Quarter: 2010Q3

REPORT INFORMATION
  Report Type: 
  Country: None (occurrence: None)
  Receive Date: 20100916
  Receipt Date: 20100903
  Transmission Date: 20110219
  Serious: Yes (Other)
  Sender: FDA-Public Use
  Company Number: DE-MYLANLABS-2010S1016324

PATIENT
  Age: 50 Year
  Sex: Male

DRUGS (2)
  1. DOXEPIN HYDROCHLORIDE [Suspect]
     Indication: SUICIDE ATTEMPT
     Route: 048
     Dates: start: 20100903, end: 20100903
  2. TILIDINE [Suspect]
     Indication: SUICIDE ATTEMPT
     Route: 048
     Dates: start: 20100903, end: 20100903

REACTIONS (4)
  - AGITATION [None]
  - DYSARTHRIA [None]
  - INTENTIONAL OVERDOSE [None]
  - SUICIDE ATTEMPT [None]
